FAERS Safety Report 9186095 (Version 4)
Quarter: 2016Q1

REPORT INFORMATION
  Report Type: Spontaneous
  Country: US (occurrence: US)
  Receive Date: 20130325
  Receipt Date: 20160122
  Transmission Date: 20160526
  Serious: Yes (Hospitalization, Congenital Anomaly, Other)
  Sender: FDA-Public Use
  Company Number: US-GLAXOSMITHKLINE-A0662884A

PATIENT
  Age: 0 Day
  Sex: Female
  Weight: 4 kg

DRUGS (3)
  1. TYLENOL [Concomitant]
     Active Substance: ACETAMINOPHEN
     Indication: ABDOMINAL PAIN
     Dates: start: 200208
  2. PAXIL [Suspect]
     Active Substance: PAROXETINE HYDROCHLORIDE
     Indication: DEPRESSION
     Dosage: 20 MG, QD
     Route: 064
  3. PRENATAL VITAMINS [Concomitant]
     Active Substance: VITAMINS

REACTIONS (13)
  - Ventricular septal defect [Unknown]
  - Congenital aortic valve incompetence [Unknown]
  - Ventricular dysfunction [Unknown]
  - Congenital heart valve disorder [Unknown]
  - Right ventricle outflow tract obstruction [Unknown]
  - Persistent foetal circulation [Unknown]
  - Congenital aortic valve stenosis [Unknown]
  - Pulmonary valve incompetence [Unknown]
  - Foetal exposure during pregnancy [Unknown]
  - Congenital aortic anomaly [Unknown]
  - Congenital pulmonary hypertension [Unknown]
  - Cardiac failure congestive [Unknown]
  - Atrial septal defect [Unknown]

NARRATIVE: CASE EVENT DATE: 20030211
